FAERS Safety Report 10252704 (Version 1)
Quarter: 2014Q2

REPORT INFORMATION
  Report Type: Spontaneous
  Country: US (occurrence: None)
  Receive Date: 20140619
  Receipt Date: 20140619
  Transmission Date: 20141212
  Serious: Yes (Other)
  Sender: FDA-Public Use
  Company Number: None

PATIENT
  Age: 62 Year
  Sex: Male
  Weight: 68.04 kg

DRUGS (4)
  1. MORPHINE SULFATE EXTENDED RELEASE [Suspect]
     Indication: PAIN
     Route: 048
     Dates: start: 20140502, end: 20140531
  2. HYDROCODONE/APAP [Concomitant]
  3. BUDEPRION SR [Concomitant]
  4. CLONAZEPAM [Concomitant]

REACTIONS (3)
  - Product quality issue [None]
  - Drug effect variable [None]
  - Drug withdrawal syndrome [None]
